FAERS Safety Report 8361681-3 (Version None)
Quarter: 2012Q2

REPORT INFORMATION
  Report Type: 
  Country: None (occurrence: None)
  Receive Date: 20120515
  Receipt Date: 20120509
  Transmission Date: 20120825
  Serious: Yes (Other)
  Sender: FDA-Public Use
  Company Number: JP-PFIZER INC-2012112649

PATIENT
  Age: 65 Year
  Sex: Male

DRUGS (1)
  1. SULFASALAZINE [Suspect]
     Dosage: 1000 MG/DAY

REACTIONS (1)
  - LUNG DISORDER [None]
